FAERS Safety Report 14890427 (Version 1)
Quarter: 2018Q2

REPORT INFORMATION
  Report Type: Spontaneous
  Country: US (occurrence: US)
  Receive Date: 20180514
  Receipt Date: 20180514
  Transmission Date: 20180711
  Serious: No
  Sender: FDA-Public Use
  Company Number: US-BAYER-2018-085572

PATIENT
  Age: 3 Year
  Sex: Male

DRUGS (4)
  1. CLARITIN [Suspect]
     Active Substance: LORATADINE
     Indication: FATIGUE
  2. CLARITIN [Suspect]
     Active Substance: LORATADINE
     Indication: HEADACHE
  3. CLARITIN [Suspect]
     Active Substance: LORATADINE
     Indication: NASAL CONGESTION
  4. CLARITIN [Suspect]
     Active Substance: LORATADINE
     Indication: FEELING ABNORMAL

REACTIONS (1)
  - Drug effect incomplete [Unknown]
